FAERS Safety Report 8492781 (Version 2)
Quarter: 2013Q1

REPORT INFORMATION
  Report Type: Spontaneous
  Country: IT (occurrence: IT)
  Receive Date: 20120404
  Receipt Date: 20130211
  Transmission Date: 20140127
  Serious: Yes (Life-Threatening, Other)
  Sender: FDA-Public Use
  Company Number: IT-AMGEN-ITASP2012019006

PATIENT
  Age: 64 Year
  Sex: Female

DRUGS (3)
  1. ENBREL [Suspect]
     Indication: RHEUMATOID ARTHRITIS
     Dosage: 50 MG, WEEKLY
     Dates: start: 20120229, end: 20120303
  2. METHOTREXATE SODIUM [Concomitant]
     Dosage: UNK
  3. MEDROL                             /00049601/ [Concomitant]
     Dosage: UNK

REACTIONS (1)
  - Laryngeal oedema [Recovered/Resolved]
